FAERS Safety Report 8123262-6 (Version None)
Quarter: 2012Q1

REPORT INFORMATION
  Report Type: 
  Country: None (occurrence: None)
  Receive Date: 20120208
  Receipt Date: 20120130
  Transmission Date: 20120608
  Serious: Yes (Other)
  Sender: FDA-Public Use
  Company Number: US-ASTRAZENECA-2011SE64369

PATIENT
  Age: 62 Year
  Sex: Male

DRUGS (1)
  1. CRESTOR [Suspect]
     Dosage: WITH A TOTAL DAILY DOSE OF 10 MG.
     Route: 048

REACTIONS (2)
  - MUSCLE STRAIN [None]
  - ACCIDENT AT WORK [None]
